FAERS Safety Report 15854635 (Version 1)
Quarter: 2019Q1

REPORT INFORMATION
  Report Type: Spontaneous
  Country: ES (occurrence: ES)
  Receive Date: 20190122
  Receipt Date: 20190122
  Transmission Date: 20190417
  Serious: Yes (Other)
  Sender: FDA-Public Use
  Company Number: ES-009507513-1901ESP004557

PATIENT
  Age: 59 Year
  Sex: Male
  Weight: 85 kg

DRUGS (7)
  1. ALIPZA [Suspect]
     Active Substance: PITAVASTATIN
     Indication: HYPERCHOLESTEROLAEMIA
     Dosage: 1 TABLET EVERY 24 H.
     Route: 048
     Dates: start: 20180528
  2. BISOPROLOL [Suspect]
     Active Substance: BISOPROLOL
     Indication: HYPERTENSION
     Dosage: 1/2 EVERY 12 H.
     Route: 048
     Dates: start: 20180604
  3. EZETROL 10 MG COMPRIMIDOS [Suspect]
     Active Substance: EZETIMIBE
     Indication: BLOOD CHOLESTEROL
     Dosage: 1 EVERY 24 H.
     Route: 048
     Dates: start: 20180604
  4. ADIRO [Suspect]
     Active Substance: ASPIRIN
     Indication: ANTICOAGULANT THERAPY
     Dosage: 1 EVERY 24 H.
     Route: 048
     Dates: start: 20180417
  5. ANEUROL [DIAZEPAM] [Suspect]
     Active Substance: DIAZEPAM
     Indication: BACK PAIN
     Dosage: 1 EVERY 24 H, NOW THE DOSE WAS INCREASED TO 2
     Route: 048
     Dates: start: 20130506
  6. CLOPIDOGREL [Suspect]
     Active Substance: CLOPIDOGREL BISULFATE
     Indication: ANTICOAGULANT THERAPY
     Dosage: 1 EVERY 24 H.
     Route: 048
     Dates: start: 20180417
  7. NEUPRO [Suspect]
     Active Substance: ROTIGOTINE
     Indication: BACK PAIN
     Dosage: 1 PATCH EVERY 24 H
     Route: 058
     Dates: start: 20130506

REACTIONS (8)
  - Decreased appetite [Not Recovered/Not Resolved]
  - Cough [Not Recovered/Not Resolved]
  - Pruritus [Not Recovered/Not Resolved]
  - Myalgia [Not Recovered/Not Resolved]
  - Depression [Not Recovered/Not Resolved]
  - Dry mouth [Not Recovered/Not Resolved]
  - Fatigue [Not Recovered/Not Resolved]
  - Amnesia [Not Recovered/Not Resolved]

NARRATIVE: CASE EVENT DATE: 20180611
